FAERS Safety Report 5609162-1 (Version None)
Quarter: 2008Q1

REPORT INFORMATION
  Report Type: 
  Country: None (occurrence: None)
  Receive Date: 20080131
  Receipt Date: 20080129
  Transmission Date: 20080703
  Serious: Yes (Other)
  Sender: FDA-Public Use
  Company Number: GB-TEVA-166935ISR

PATIENT
  Age: 34 Year
  Sex: Male
  Weight: 76 kg

DRUGS (1)
  1. IBUPROFEN [Suspect]
     Dates: start: 20080108, end: 20080109

REACTIONS (2)
  - EYE PAIN [None]
  - EYE SWELLING [None]
